FAERS Safety Report 12892030 (Version 7)
Quarter: 2018Q3

REPORT INFORMATION
  Report Type: Report from Study
  Country: CZ (occurrence: CZ)
  Receive Date: 20161028
  Receipt Date: 20180726
  Transmission Date: 20181010
  Serious: Yes (Hospitalization)
  Sender: FDA-Public Use
  Company Number: CZ-ROCHE-1845470

PATIENT
  Age: 68 Year
  Sex: Male
  Weight: 78 kg

DRUGS (59)
  1. VALSARTAN/HYDROCHLOROTHIAZIDE AHCL [Concomitant]
     Route: 065
     Dates: start: 20161014, end: 20161020
  2. PARACETAMOLUM [Concomitant]
     Active Substance: ACETAMINOPHEN
     Indication: CHRONIC OBSTRUCTIVE PULMONARY DISEASE
     Dosage: RITUXIMAB PRE?MEDICATION
     Route: 065
     Dates: start: 20161007, end: 20161007
  3. CEFUROXIME AXETIL. [Concomitant]
     Active Substance: CEFUROXIME AXETIL
     Indication: INFECTION PROPHYLAXIS
     Route: 065
     Dates: start: 20161014, end: 20161015
  4. BENZYDAMINE HYDROCHLORIDE [Concomitant]
     Active Substance: BENZYDAMINE HYDROCHLORIDE
     Indication: MUCOSAL INFLAMMATION
     Route: 065
     Dates: start: 20161014, end: 20161101
  5. RABEPRAZOLUM NATRICUM [Concomitant]
     Indication: PROPHYLAXIS
     Route: 065
     Dates: start: 20161003
  6. CEFEPIME HYDROCHLORIDE. [Concomitant]
     Active Substance: CEFEPIME HYDROCHLORIDE
     Indication: PROPHYLAXIS
     Route: 065
     Dates: start: 20161005, end: 20161005
  7. LACTULOSE. [Concomitant]
     Active Substance: LACTULOSE
     Indication: PROPHYLAXIS
     Route: 065
     Dates: start: 20161008, end: 20161008
  8. VENETOCLAX. [Suspect]
     Active Substance: VENETOCLAX
     Indication: B-CELL LYMPHOMA
     Dosage: MOST RECENT DOSE (400 MG) PRIOR TO ONSET OF EVENT WAS 16/OCT/2016
     Route: 048
     Dates: start: 20161010
  9. CYCLOPHOSPHAMIDE. [Suspect]
     Active Substance: CYCLOPHOSPHAMIDE
     Indication: B-CELL LYMPHOMA
     Dosage: MOST RECENT DOSE (1470 MG) PRIOR TO ONSET OF EVENT WAS 08/OCT/2016 AT 01:15
     Route: 042
     Dates: start: 20161008
  10. PREDNISONE. [Suspect]
     Active Substance: PREDNISONE
     Indication: B-CELL LYMPHOMA
     Dosage: MOST RECENT DOSE (100 OTHER) PRIOR TO ONSET OF EVENT WAS 11/OCT/2016
     Route: 048
     Dates: start: 20161007
  11. PARACETAMOLUM [Concomitant]
     Active Substance: ACETAMINOPHEN
     Route: 065
     Dates: start: 201702, end: 201702
  12. GRANISETRON [Concomitant]
     Active Substance: GRANISETRON
     Indication: PROPHYLAXIS OF NAUSEA AND VOMITING
     Route: 065
     Dates: start: 20161011, end: 20161011
  13. THIETHYLPERAZINE MALEATE [Concomitant]
     Active Substance: THIETHYLPERAZINE MALEATE
     Indication: NAUSEA
     Route: 065
     Dates: start: 20161018, end: 20161021
  14. HYDROCORTISONE. [Concomitant]
     Active Substance: HYDROCORTISONE
     Indication: PREMEDICATION
     Dosage: RITUXIMAB PRE?MEDICATION
     Route: 065
     Dates: start: 20161010, end: 20161010
  15. HYDROCORTISONE. [Concomitant]
     Active Substance: HYDROCORTISONE
     Indication: INFUSION RELATED REACTION
     Route: 065
     Dates: start: 20161027, end: 20161027
  16. BUDESONIDUM [Concomitant]
     Active Substance: BUDESONIDE
     Indication: ASTHMA
     Route: 065
     Dates: end: 20161129
  17. LATANOPROSTUM [Concomitant]
     Indication: GLAUCOMA
  18. BISULEPIN HYDROCHLORIDE [Concomitant]
     Active Substance: BISULEPIN HYDROCHLORIDE
     Indication: INFUSION RELATED REACTION
     Route: 065
     Dates: start: 20161027, end: 20161027
  19. BISULEPIN HYDROCHLORIDE [Concomitant]
     Active Substance: BISULEPIN HYDROCHLORIDE
     Dosage: RITUXIMAB PRE?MEDICATION
     Route: 065
     Dates: start: 20161007, end: 20161007
  20. FILGRASTIM [Concomitant]
     Active Substance: FILGRASTIM
     Route: 065
     Dates: start: 20161021, end: 20161022
  21. ZOLPIDEM TARTRATE. [Concomitant]
     Active Substance: ZOLPIDEM TARTRATE
     Indication: PROPHYLAXIS
     Route: 065
     Dates: start: 20161023, end: 20161023
  22. METAMIZOLUM NATRICUM [Concomitant]
     Indication: PYREXIA
     Route: 065
     Dates: start: 20161023
  23. METHOTREXATUM [Concomitant]
     Active Substance: METHOTREXATE
     Indication: PROPHYLAXIS
     Route: 065
     Dates: start: 20161027, end: 20161027
  24. CALCIUM POLYSTYRENE SULFONATE [Concomitant]
     Active Substance: CALCIUM POLYSTYRENE SULFONATE
     Indication: PROPHYLAXIS
     Route: 065
     Dates: start: 20161004, end: 20161006
  25. AMLODIPINUM [Concomitant]
     Route: 065
     Dates: start: 20161022, end: 20161031
  26. RITUXIMAB. [Suspect]
     Active Substance: RITUXIMAB
     Indication: B-CELL LYMPHOMA
     Dosage: MOST RECENT DOSE (735 MG) PRIOR TO ONSET OF EVENT WAS 07/OCT/2016 AT 17:30
     Route: 042
     Dates: start: 20161007
  27. VINCRISTINE [Suspect]
     Active Substance: VINCRISTINE
     Indication: B-CELL LYMPHOMA
     Dosage: MOST RECENT DOSE (2 MG) PRIOR TO ONSET OF EVENT WAS 08/OCT/2016 AT 02:55.
     Route: 042
     Dates: start: 20161008
  28. PREDNISONUM [Concomitant]
     Active Substance: PREDNISONE
     Indication: PREMEDICATION
     Dosage: PREPHASE OF DLBCL TREATMENT
     Route: 065
     Dates: start: 20161005, end: 20161006
  29. GRANISETRON [Concomitant]
     Active Substance: GRANISETRON
     Route: 065
     Dates: start: 20161027, end: 20161027
  30. FILGRASTIM [Concomitant]
     Active Substance: FILGRASTIM
     Indication: NEUTROPENIA
     Route: 065
     Dates: start: 20161014, end: 20161023
  31. ALPRAZOLAMUM [Concomitant]
     Indication: PROPHYLAXIS
     Route: 065
     Dates: start: 20161012, end: 20161012
  32. AMLODIPINUM [Concomitant]
     Indication: HYPERTENSION
     Route: 065
     Dates: start: 20161011, end: 20161013
  33. DOXORUBICIN [Suspect]
     Active Substance: DOXORUBICIN
     Indication: B-CELL LYMPHOMA
     Dosage: MOST RECENT DOSE (98 MG) PRIOR TO ONSET OF EVENT WAS 08/OCT/2016 AT 02:15.
     Route: 042
     Dates: start: 20161008
  34. OMEPRAZOLUM [Concomitant]
     Indication: PROPHYLAXIS
     Route: 065
     Dates: start: 20161004, end: 20161109
  35. NADROPARINUM CALCICUM [Concomitant]
     Indication: THROMBOSIS PROPHYLAXIS
     Route: 065
     Dates: start: 20161004, end: 20161011
  36. PARACETAMOLUM [Concomitant]
     Active Substance: ACETAMINOPHEN
     Indication: PREMEDICATION
     Route: 065
     Dates: start: 20161010, end: 20161010
  37. PARACETAMOLUM [Concomitant]
     Active Substance: ACETAMINOPHEN
     Indication: PREMEDICATION
     Route: 065
     Dates: start: 20161027, end: 20161027
  38. BISULEPIN HYDROCHLORIDE [Concomitant]
     Active Substance: BISULEPIN HYDROCHLORIDE
     Indication: PREMEDICATION
     Route: 065
     Dates: start: 20161010, end: 20161010
  39. LIDOCAINE/PEPPERMINT OIL/MAALOX [Concomitant]
     Indication: MUCOSAL INFLAMMATION
     Route: 065
     Dates: start: 20161018, end: 20161022
  40. VALSARTAN/HYDROCHLOROTHIAZIDE AHCL [Concomitant]
     Indication: HYPERTENSION
     Route: 065
     Dates: end: 20161004
  41. SALBUTAMOLI SULFAS [Concomitant]
     Indication: ASTHMA
     Route: 065
     Dates: start: 2010
  42. FUROSEMIDUM [Concomitant]
     Active Substance: FUROSEMIDE
     Route: 065
     Dates: start: 20161023, end: 20161025
  43. FUROSEMIDUM [Concomitant]
     Active Substance: FUROSEMIDE
     Route: 065
     Dates: start: 20161027, end: 20161030
  44. FILGRASTIM [Concomitant]
     Active Substance: FILGRASTIM
     Route: 065
     Dates: start: 20161218
  45. GLYCEROLUM [Concomitant]
     Indication: CONSTIPATION
     Route: 065
     Dates: start: 20161022, end: 20161022
  46. METAMIZOLUM NATRICUM [Concomitant]
     Route: 065
     Dates: start: 20161024, end: 20161024
  47. METOCLOPRAMIDI HYDROCHLORIDUM [Concomitant]
     Indication: NAUSEA
     Route: 065
     Dates: start: 20161004, end: 20161004
  48. ACICLOVIRUM [Concomitant]
     Indication: INFECTION PROPHYLAXIS
     Route: 065
     Dates: start: 20161014, end: 20161020
  49. HYDROCORTISONE. [Concomitant]
     Active Substance: HYDROCORTISONE
     Dosage: RITUXIMAB PRE?MEDICATION
     Route: 065
     Dates: start: 20161007, end: 20161007
  50. KETOTIFEN FUMARATE. [Concomitant]
     Active Substance: KETOTIFEN FUMARATE
     Indication: ASTHMA
     Route: 065
     Dates: start: 2010, end: 20161118
  51. CEFTRIAXONE DISODIUM [Concomitant]
     Active Substance: CEFTRIAXONE
     Indication: INFECTION PROPHYLAXIS
     Route: 065
     Dates: start: 20161005, end: 20161013
  52. GRANISETRON [Concomitant]
     Active Substance: GRANISETRON
     Route: 065
     Dates: start: 20161004, end: 20161004
  53. FILGRASTIM [Concomitant]
     Active Substance: FILGRASTIM
     Route: 065
     Dates: start: 20161023, end: 20161023
  54. FORMOTEROL FUMARATE DIHYDRATE [Concomitant]
     Active Substance: FORMOTEROL FUMARATE DIHYDRATE
     Indication: ASTHMA
     Route: 065
     Dates: start: 2010, end: 20161129
  55. FUROSEMIDUM [Concomitant]
     Active Substance: FUROSEMIDE
     Indication: PROPHYLAXIS
     Route: 065
     Dates: start: 20161006, end: 20161013
  56. FILGRASTIM [Concomitant]
     Active Substance: FILGRASTIM
     Indication: PROPHYLAXIS
     Route: 065
     Dates: start: 20161013, end: 20161013
  57. FILGRASTIM [Concomitant]
     Active Substance: FILGRASTIM
     Route: 065
     Dates: start: 20161027, end: 20161030
  58. ALLOPURINOL. [Concomitant]
     Active Substance: ALLOPURINOL
     Indication: PROPHYLAXIS
     Route: 065
     Dates: start: 20161004, end: 20161020
  59. SALBUTAMOLI SULFAS [Concomitant]
     Indication: COUGH
     Route: 065
     Dates: start: 201612

REACTIONS (1)
  - Cellulitis [Recovered/Resolved]

NARRATIVE: CASE EVENT DATE: 20161021
